FAERS Safety Report 9559229 (Version 3)
Quarter: 2013Q4

REPORT INFORMATION
  Report Type: Report from Study
  Country: TR (occurrence: TR)
  Receive Date: 20130927
  Receipt Date: 20131004
  Transmission Date: 20140711
  Serious: Yes (Death, Hospitalization, Other)
  Sender: FDA-Public Use
  Company Number: PHHY2013TR021172

PATIENT
  Age: 23 Year
  Sex: Male

DRUGS (1)
  1. GLIVEC [Suspect]
     Indication: CHRONIC MYELOID LEUKAEMIA
     Dosage: 400 MG, DAILY
     Route: 048
     Dates: start: 20111124, end: 201308

REACTIONS (3)
  - Death [Fatal]
  - Full blood count decreased [Not Recovered/Not Resolved]
  - Chronic myeloid leukaemia transformation [Unknown]
